FAERS Safety Report 14416807 (Version 7)
Quarter: 2020Q4

REPORT INFORMATION
  Report Type: Other
  Country: CA (occurrence: CA)
  Receive Date: 20180122
  Receipt Date: 20201109
  Transmission Date: 20210113
  Serious: Yes (Other)
  Sender: FDA-Public Use
  Company Number: CA-ROCHE-2049492

PATIENT
  Age: 43 Year
  Sex: Female

DRUGS (16)
  1. OCREVUS [Suspect]
     Active Substance: OCRELIZUMAB
     Route: 042
  2. CYMBALTA [Concomitant]
     Active Substance: DULOXETINE HYDROCHLORIDE
  3. TYLENOL WITH CODEINE [Concomitant]
     Active Substance: ACETAMINOPHEN\CODEINE PHOSPHATE
  4. OCREVUS [Suspect]
     Active Substance: OCRELIZUMAB
     Indication: RELAPSING-REMITTING MULTIPLE SCLEROSIS
     Dosage: AS PER PROTOCOL EXCEPT LAST INFUSION BEFORE TODAY WAS 9 MONTHS AGO IN JAN 2019
     Route: 042
     Dates: start: 20171229
  5. SOLU-MEDROL [Suspect]
     Active Substance: METHYLPREDNISOLONE SODIUM SUCCINATE
     Indication: PRODUCT USED FOR UNKNOWN INDICATION
     Route: 065
  6. CYCLOBENZAPRINE. [Concomitant]
     Active Substance: CYCLOBENZAPRINE
  7. TOPIRAMATE. [Concomitant]
     Active Substance: TOPIRAMATE
     Dosage: 2 IN THE MORNING AND 2 AT NIGHT
  8. TECFIDERA [Suspect]
     Active Substance: DIMETHYL FUMARATE
     Indication: PRODUCT USED FOR UNKNOWN INDICATION
     Route: 065
  9. LANZOPRAZOL [Concomitant]
     Active Substance: LANSOPRAZOLE
  10. OCREVUS [Suspect]
     Active Substance: OCRELIZUMAB
     Route: 042
  11. ZOPLICONE [Concomitant]
     Active Substance: ZOPICLONE
  12. SYNTHROID [Concomitant]
     Active Substance: LEVOTHYROXINE SODIUM
  13. LIPIDIL SUPRA [Concomitant]
     Active Substance: FENOFIBRATE
  14. EZETIMIBE. [Concomitant]
     Active Substance: EZETIMIBE
  15. TRAZODONE [Concomitant]
     Active Substance: TRAZODONE HYDROCHLORIDE
  16. BETAHISTINE [Concomitant]
     Active Substance: BETAHISTINE
     Indication: VERTIGO

REACTIONS (15)
  - Headache [Not Recovered/Not Resolved]
  - Headache [Recovered/Resolved]
  - Hemiparesis [Recovering/Resolving]
  - Fatigue [Unknown]
  - Rhinitis [Recovered/Resolved]
  - Dizziness [Recovered/Resolved]
  - Pain in extremity [Recovered/Resolved]
  - Candida infection [Recovered/Resolved]
  - Nasopharyngitis [Recovered/Resolved]
  - Urinary tract infection [Recovered/Resolved]
  - Memory impairment [Not Recovered/Not Resolved]
  - Optic neuritis [Unknown]
  - Rash [Not Recovered/Not Resolved]
  - Hypoaesthesia [Recovering/Resolving]
  - Lower respiratory tract infection [Recovered/Resolved]

NARRATIVE: CASE EVENT DATE: 20171229
